FAERS Safety Report 6582749-8 (Version None)
Quarter: 2010Q1

REPORT INFORMATION
  Report Type: 
  Country: None (occurrence: None)
  Receive Date: 20100216
  Receipt Date: 20100204
  Transmission Date: 20100710
  Serious: Yes (Other)
  Sender: FDA-Public Use
  Company Number: GB-PFIZER INC-2010015937

PATIENT
  Sex: Male

DRUGS (1)
  1. ANIDULAFUNGIN [Suspect]
     Dosage: UNK

REACTIONS (1)
  - ENDOPHTHALMITIS [None]
